FAERS Safety Report 8361252-9 (Version None)
Quarter: 2012Q2

REPORT INFORMATION
  Report Type: 
  Country: None (occurrence: None)
  Receive Date: 20120515
  Receipt Date: 20110728
  Transmission Date: 20120825
  Serious: Yes (Other)
  Sender: FDA-Public Use
  Company Number: US-ALEXION-A201101156

PATIENT
  Sex: Male

DRUGS (4)
  1. FOLIC ACID [Concomitant]
     Dosage: 1 MG QD
     Route: 048
  2. CIPROFLOXACIN [Concomitant]
     Dosage: 500 MG Q12HOURS
     Route: 048
  3. SOLIRIS [Suspect]
     Indication: PAROXYSMAL NOCTURNAL HAEMOGLOBINURIA
     Dosage: 600 MG QW
     Route: 042
     Dates: start: 20110727
  4. PREDNISONE TAB [Concomitant]
     Dosage: 5 MG Q OTHER DAY
     Route: 048

REACTIONS (1)
  - APPENDICITIS [None]
